FAERS Safety Report 14568188 (Version 3)
Quarter: 2018Q2

REPORT INFORMATION
  Report Type: Spontaneous
  Country: US (occurrence: US)
  Receive Date: 20180223
  Receipt Date: 20180411
  Transmission Date: 20180711
  Serious: Yes (Other)
  Sender: FDA-Public Use
  Company Number: US-ALLERGAN-1805775US

PATIENT
  Age: 53 Year
  Sex: Female
  Weight: 68.27 kg

DRUGS (3)
  1. ARMOUR THYROID [Suspect]
     Active Substance: THYROID, PORCINE
     Dosage: 0.25 G, (15MG)
     Route: 048
     Dates: start: 20180308
  2. ARMOUR THYROID [Suspect]
     Active Substance: THYROID, PORCINE
     Indication: AUTOIMMUNE THYROIDITIS
     Dosage: 1/2 GRAM (30 MG), QD
     Route: 048
     Dates: start: 2013
  3. ARMOUR THYROID [Suspect]
     Active Substance: THYROID, PORCINE
     Indication: HYPOTHYROIDISM
     Dosage: 1/2 GRAM (30 MG), QD
     Route: 048
     Dates: start: 201710

REACTIONS (12)
  - Endometriosis [Unknown]
  - Feeling cold [Recovered/Resolved]
  - Trichorrhexis [Not Recovered/Not Resolved]
  - Drug ineffective [Unknown]
  - Adenocarcinoma [Unknown]
  - Pruritus [Not Recovered/Not Resolved]
  - Skin warm [Not Recovered/Not Resolved]
  - Fatigue [Not Recovered/Not Resolved]
  - Alopecia [Recovered/Resolved]
  - Product size issue [Unknown]
  - Urticaria [Recovering/Resolving]
  - Muscle twitching [Not Recovered/Not Resolved]

NARRATIVE: CASE EVENT DATE: 201710
